FAERS Safety Report 5386346-1 (Version None)
Quarter: 2007Q3

REPORT INFORMATION
  Report Type: 
  Country: None (occurrence: None)
  Receive Date: 20070713
  Receipt Date: 20070702
  Transmission Date: 20080115
  Serious: Yes (Hospitalization, Other)
  Sender: FDA-Public Use
  Company Number: US-ASTRAZENECA-2007UW01960

PATIENT
  Age: 53 Year
  Sex: Male
  Weight: 90.9 kg

DRUGS (26)
  1. SEROQUEL [Suspect]
     Indication: BIPOLAR DISORDER
     Dosage: 100 - 200 MG
     Route: 048
     Dates: start: 20050621
  2. SEROQUEL [Suspect]
     Dosage: 25-100 MG
     Route: 048
     Dates: start: 20050713, end: 20060430
  3. SEROQUEL [Suspect]
     Dates: start: 20050816
  4. RISPERDAL [Concomitant]
     Dosage: 0.5-1MG
     Dates: start: 20060601
  5. LORAZEPAM [Concomitant]
     Dates: start: 20050714
  6. FLUOXETINE [Concomitant]
     Dates: start: 20050714
  7. MEPERIDINE HCL [Concomitant]
     Dates: start: 20050812
  8. LAMICTAL [Concomitant]
     Dates: start: 20050816
  9. LAMICTAL [Concomitant]
     Dates: start: 20051109
  10. FEXOFENADINE [Concomitant]
     Dates: start: 20060113
  11. NASACORT AQ [Concomitant]
     Dosage: 120 SPRAY 16.5 GM
     Dates: start: 20051006
  12. ACETAMINOPHEN AND HYDROCODONE BITARTRATE [Concomitant]
     Dosage: 10 MG/500 MG
     Dates: start: 20060208
  13. ACETAMINOPHEN AND HYDROCODONE BITARTRATE [Concomitant]
     Dosage: 7.5 MG/325 MG
     Dates: start: 20051213
  14. ACETAMINOPHEN AND HYDROCODONE BITARTRATE [Concomitant]
     Dosage: 5 MG/500 MG
     Dates: start: 20051223
  15. ACETAMINOPHEN AND HYDROCODONE BITARTRATE [Concomitant]
     Dosage: 10 MG/325 MG
     Dates: start: 20051115
  16. CEPHALEXIN [Concomitant]
  17. PROPOXYPHENE HCL [Concomitant]
  18. ACTOS [Concomitant]
     Dates: start: 20060113
  19. ACTOS [Concomitant]
     Dates: start: 20060126
  20. TRAMADOL HCL [Concomitant]
     Dates: start: 20060113
  21. METFORMIN HCL [Concomitant]
     Dates: start: 20060215
  22. PRAVACHOL [Concomitant]
     Dates: start: 20060215
  23. ATIVAN [Concomitant]
     Indication: INSOMNIA
     Dosage: ONE TO TWO AT BEDTIME
     Route: 048
     Dates: start: 20050815
  24. PROZAC [Concomitant]
     Route: 048
     Dates: start: 20050816
  25. PROZAC [Concomitant]
     Route: 048
  26. VIAGRA [Concomitant]

REACTIONS (11)
  - ACCIDENTAL OVERDOSE [None]
  - ANXIETY [None]
  - DEPRESSED MOOD [None]
  - HYPERLIPIDAEMIA [None]
  - INSOMNIA [None]
  - IRRITABILITY [None]
  - OVERWEIGHT [None]
  - SEPTOPLASTY [None]
  - SHOULDER ARTHROPLASTY [None]
  - SUICIDE ATTEMPT [None]
  - TYPE 2 DIABETES MELLITUS [None]
